FAERS Safety Report 20843729 (Version 1)
Quarter: 2022Q2

REPORT INFORMATION
  Report Type: Report from Study
  Country: MX (occurrence: MX)
  Receive Date: 20220518
  Receipt Date: 20220518
  Transmission Date: 20220721
  Serious: Yes (Other)
  Sender: FDA-Public Use
  Company Number: MX-NOVARTISPH-NVSC2022MX066221

PATIENT
  Age: 91 Year
  Sex: Female
  Weight: 63 kg

DRUGS (4)
  1. EXELON [Suspect]
     Active Substance: RIVASTIGMINE TARTRATE
     Indication: Senile dementia
     Dosage: 4.6 MG, QD PATCH 5 , (1 MONTH AGO)
     Route: 003
  2. EXELON [Suspect]
     Active Substance: RIVASTIGMINE TARTRATE
     Dosage: 9.5 MG, QD (PATCH 10CM2) (18 MG)
     Route: 003
  3. EXELON [Suspect]
     Active Substance: RIVASTIGMINE TARTRATE
     Dosage: 1 DOSAGE FORM (9MG), QD
     Route: 003
     Dates: start: 20220216, end: 20220320
  4. EXELON [Suspect]
     Active Substance: RIVASTIGMINE TARTRATE
     Dosage: 1 DOSAGE FORM (18MG), QD
     Route: 003
     Dates: start: 20220321

REACTIONS (6)
  - Malaise [Recovered/Resolved]
  - Hypoxia [Recovered/Resolved]
  - Mood altered [Recovered/Resolved]
  - General physical health deterioration [Unknown]
  - Aggression [Recovered/Resolved]
  - Product use in unapproved indication [Unknown]

NARRATIVE: CASE EVENT DATE: 20220218
